FAERS Safety Report 10607081 (Version 1)
Quarter: 2014Q4

REPORT INFORMATION
  Report Type: Spontaneous
  Country: US (occurrence: US)
  Receive Date: 20141125
  Receipt Date: 20141125
  Transmission Date: 20150529
  Serious: No
  Sender: FDA-Public Use
  Company Number: US-TEVA-511868USA

PATIENT
  Sex: Female

DRUGS (1)
  1. OXYBUTYNIN [Suspect]
     Active Substance: OXYBUTYNIN
     Route: 065

REACTIONS (6)
  - Oesophageal disorder [Unknown]
  - Dry throat [Unknown]
  - Chest pain [Unknown]
  - Dry mouth [Unknown]
  - Neck pain [Unknown]
  - Drug intolerance [Unknown]
